FAERS Safety Report 20409645 (Version 3)
Quarter: 2022Q1

REPORT INFORMATION
  Report Type: Spontaneous
  Country: US (occurrence: US)
  Receive Date: 20220201
  Receipt Date: 20220209
  Transmission Date: 20220423
  Serious: No
  Sender: FDA-Public Use
  Company Number: US-NOVARTISTESTPH-NVSC2022US020947

PATIENT

DRUGS (1)
  1. RITALIN [Suspect]
     Active Substance: METHYLPHENIDATE HYDROCHLORIDE
     Indication: Narcolepsy
     Dosage: UNK UNK, QD
     Route: 065

REACTIONS (5)
  - Headache [Not Recovered/Not Resolved]
  - Myalgia [Unknown]
  - Nausea [Unknown]
  - Ocular discomfort [Unknown]
  - Abdominal discomfort [Unknown]
